FAERS Safety Report 9694425 (Version 2)
Quarter: 2014Q1

REPORT INFORMATION
  Report Type: Spontaneous
  Country: GB (occurrence: GB)
  Receive Date: 20131118
  Receipt Date: 20140227
  Transmission Date: 20141002
  Serious: Yes (Other)
  Sender: FDA-Public Use
  Company Number: GB-BAXTER-2013BAX045357

PATIENT
  Age: 38 Year
  Sex: Male

DRUGS (29)
  1. FEIBA IMMUNO FACTOR VIII INHIBITOR BYPASSING FRACTION HUMAN VAPOUR HEA [Suspect]
     Indication: FACTOR VIII INHIBITION
     Dosage: IN THREE DIVIDED DOSES ON DAY 4
     Route: 065
  2. FEIBA IMMUNO FACTOR VIII INHIBITOR BYPASSING FRACTION HUMAN VAPOUR HEA [Suspect]
     Dosage: 100-150 U/KG; IN TWO DIVIDED DOSES
     Route: 065
  3. FEIBA IMMUNO FACTOR VIII INHIBITOR BYPASSING FRACTION HUMAN VAPOUR HEA [Suspect]
     Route: 065
  4. FEIBA IMMUNO FACTOR VIII INHIBITOR BYPASSING FRACTION HUMAN VAPOUR HEA [Suspect]
     Dosage: IN TWO DIVED DOSES ON DAY 16
     Route: 065
  5. FEIBA IMMUNO FACTOR VIII INHIBITOR BYPASSING FRACTION HUMAN VAPOUR HEA [Suspect]
     Dosage: OVER TWO DOSES ON DAY 6
     Route: 065
  6. FEIBA IMMUNO FACTOR VIII INHIBITOR BYPASSING FRACTION HUMAN VAPOUR HEA [Suspect]
     Dosage: ON DAY 8 AND CONTINUED UNTIL DAY 17
     Route: 065
  7. FEIBA IMMUNO FACTOR VIII INHIBITOR BYPASSING FRACTION HUMAN VAPOUR HEA [Suspect]
     Dosage: DAY 1
     Route: 065
  8. FEIBA IMMUNO FACTOR VIII INHIBITOR BYPASSING FRACTION HUMAN VAPOUR HEA [Suspect]
     Dosage: FOUR DIVIDED DOSES ON DAY 2
     Route: 065
  9. FEIBA IMMUNO FACTOR VIII INHIBITOR BYPASSING FRACTION HUMAN VAPOUR HEA [Suspect]
     Dosage: DAY 1
     Route: 065
  10. FEIBA IMMUNO FACTOR VIII INHIBITOR BYPASSING FRACTION HUMAN VAPOUR HEA [Suspect]
     Dosage: OVER TWO DOSES ON DAY 9
     Route: 065
  11. FEIBA IMMUNO FACTOR VIII INHIBITOR BYPASSING FRACTION HUMAN VAPOUR HEA [Suspect]
     Dosage: DAY 1
     Route: 065
  12. FEIBA IMMUNO FACTOR VIII INHIBITOR BYPASSING FRACTION HUMAN VAPOUR HEA [Suspect]
     Dosage: IN THREE DIVIDED DOSES ON DAY 2
     Route: 065
  13. FEIBA IMMUNO FACTOR VIII INHIBITOR BYPASSING FRACTION HUMAN VAPOUR HEA [Suspect]
     Dosage: FOR THREE 2 HOURLY DOSES
     Route: 065
  14. FEIBA IMMUNO FACTOR VIII INHIBITOR BYPASSING FRACTION HUMAN VAPOUR HEA [Suspect]
     Route: 065
  15. FEIBA IMMUNO FACTOR VIII INHIBITOR BYPASSING FRACTION HUMAN VAPOUR HEA [Suspect]
     Dosage: DAY 1 IN THREE DIVIDED DOSES UNTIL DAY 10
     Route: 065
  16. FEIBA IMMUNO FACTOR VIII INHIBITOR BYPASSING FRACTION HUMAN VAPOUR HEA [Suspect]
     Dosage: FOR A FURTHER 2 DAYS
     Route: 065
  17. FEIBA IMMUNO FACTOR VIII INHIBITOR BYPASSING FRACTION HUMAN VAPOUR HEA [Suspect]
     Dosage: BEFORE PHYSIOTHERAPY UNTIL DAY 15
     Route: 065
  18. RFVIIA [Suspect]
     Indication: FACTOR VIII INHIBITION
     Dosage: ON DAY 12
     Route: 065
     Dates: start: 2008
  19. RFVIIA [Suspect]
     Dosage: ON DAY 15
     Route: 065
  20. RFVIIA [Suspect]
     Route: 065
  21. RFVIIA [Suspect]
     Route: 065
  22. RFVIIA [Suspect]
     Route: 065
     Dates: start: 2008
  23. RFVIIA [Suspect]
     Route: 065
  24. RFVIIA [Suspect]
     Route: 065
     Dates: start: 2007
  25. RFVIIA [Suspect]
     Route: 065
  26. RFVIIA [Suspect]
     Dosage: FOR ONE DOSE
     Route: 065
  27. RFVIIA [Suspect]
     Dosage: TWO HOURS FOR A FURTHER THREE DOSES
     Route: 065
  28. RFVIIA [Suspect]
     Dosage: THREE 2 HOURLY DOSES
  29. TRANEXAMIC ACID [Suspect]
     Indication: FACTOR VIII INHIBITION
     Route: 065

REACTIONS (6)
  - Scrotal haematoma [Recovered/Resolved]
  - Abdominal wall haematoma [Recovered/Resolved]
  - Wound haemorrhage [Recovered/Resolved]
  - Haemorrhage [Recovered/Resolved]
  - Intra-abdominal haematoma [Recovered/Resolved]
  - Wound haemorrhage [Recovered/Resolved]
